FAERS Safety Report 19885277 (Version 1)
Quarter: 2021Q3

REPORT INFORMATION
  Report Type: Spontaneous
  Country: US (occurrence: US)
  Receive Date: 20210924
  Receipt Date: 20210924
  Transmission Date: 20211014
  Serious: Yes (Hospitalization)
  Sender: FDA-Public Use
  Company Number: None

PATIENT
  Age: 41 Year
  Sex: Female

DRUGS (1)
  1. ENBREL [Suspect]
     Active Substance: ETANERCEPT
     Route: 058
     Dates: start: 20201130

REACTIONS (4)
  - Hyperthyroidism [None]
  - Heart rate increased [None]
  - Brain natriuretic peptide increased [None]
  - Thyroiditis [None]

NARRATIVE: CASE EVENT DATE: 20210917
